FAERS Safety Report 4576869-7 (Version None)
Quarter: 2005Q1

REPORT INFORMATION
  Report Type: 
  Country: None (occurrence: None)
  Receive Date: 20050207
  Receipt Date: 20050124
  Transmission Date: 20050727
  Serious: Yes (Hospitalization, Other)
  Sender: FDA-Public Use
  Company Number: 200955

PATIENT
  Age: 25 Year
  Sex: Female

DRUGS (4)
  1. AVONEX [Suspect]
     Indication: MULTIPLE SCLEROSIS
     Dosage: 30 UG; QW; IM
     Route: 030
     Dates: start: 20011101
  2. VICODIN [Concomitant]
  3. VALIUM [Concomitant]
  4. ALBUTEROL [Concomitant]

REACTIONS (16)
  - ABORTION INDUCED [None]
  - BEDRIDDEN [None]
  - CONDITION AGGRAVATED [None]
  - DRUG EXPOSURE DURING PREGNANCY [None]
  - FATIGUE [None]
  - FEELING ABNORMAL [None]
  - HEADACHE [None]
  - HYPOAESTHESIA [None]
  - MULTIPLE SCLEROSIS [None]
  - MUSCLE SPASMS [None]
  - MUSCULAR WEAKNESS [None]
  - OPTIC NEURITIS [None]
  - PREGNANCY [None]
  - STRESS [None]
  - TREATMENT NONCOMPLIANCE [None]
  - VISION BLURRED [None]
